FAERS Safety Report 7477917-7 (Version None)
Quarter: 2011Q2

REPORT INFORMATION
  Report Type: 
  Country: None (occurrence: None)
  Receive Date: 20110513
  Receipt Date: 20090618
  Transmission Date: 20111010
  Serious: Yes (Other)
  Sender: FDA-Public Use
  Company Number: US-BAYER-200923855NA

PATIENT
  Age: 42 Year
  Sex: Male
  Weight: 94 kg

DRUGS (21)
  1. TOPROL-XL [Concomitant]
     Dosage: 100 MG, QD
     Route: 048
     Dates: start: 20000801
  2. PHENERGAN [Concomitant]
     Indication: NAUSEA
     Dosage: 12.5-25MG/EVERY 4-6H PRN
  3. LIPITOR [Concomitant]
     Dosage: 40 MG, QD
     Route: 048
     Dates: start: 20000801
  4. HEPARIN [Concomitant]
     Dosage: 5000 U, UNK
     Route: 042
     Dates: start: 20011201, end: 20011201
  5. VALIUM NOVUM [Concomitant]
     Dosage: 5 MG, UNK
     Route: 048
  6. TRASYLOL [Suspect]
     Indication: CORONARY ARTERY BYPASS
     Dosage: 1 MILLION UNITS LOADING DOSE
     Route: 042
     Dates: start: 20001201, end: 20001201
  7. LOVENOX [Concomitant]
     Dosage: 60 MG, Q12H
     Route: 058
  8. ANCEF [Concomitant]
  9. ACETYLSALICYLIC ACID SRT [Concomitant]
     Dosage: 325 MG, QD
     Route: 048
     Dates: start: 20000801
  10. RESTORIL [Concomitant]
     Indication: SLEEP DISORDER
     Dosage: 15-30MG/EVERY NIGHT AS NEEDED
  11. ZANTAC [Concomitant]
     Dosage: 150 MG, UNK
     Route: 048
  12. LIDOCAINE [Concomitant]
     Dosage: UNK
     Route: 042
     Dates: start: 20001201, end: 20001201
  13. TYLENOL REGULAR [Concomitant]
     Dosage: 650MG/EVERY FOUR HOURS, PRN
     Route: 048
  14. PHENERGAN [Concomitant]
     Indication: VOMITING
  15. HEPARIN [Concomitant]
     Dosage: 10,000 U
     Route: 042
     Dates: start: 20001201, end: 20001201
  16. ALBUMIN NOS [Concomitant]
     Dosage: 12.5 MG, UNK
     Route: 042
     Dates: start: 20001201, end: 20001201
  17. ISOSORBIDE DINITRA [Concomitant]
     Dosage: 60 MG, QD
     Route: 048
     Dates: start: 20000801
  18. XANAX [Concomitant]
     Dosage: 0.5 MG, UNK
  19. TRIDIL [Concomitant]
     Dosage: 1.5CC/5MCG
     Route: 042
  20. CARDIOPLEGIA [Concomitant]
     Dosage: UNK
     Route: 042
     Dates: start: 20001201, end: 20001201
  21. MANNITOL [Concomitant]
     Dosage: 12.5 MG, UNK
     Route: 042
     Dates: start: 20001201, end: 20001201

REACTIONS (13)
  - MULTI-ORGAN FAILURE [None]
  - RENAL FAILURE [None]
  - RENAL IMPAIRMENT [None]
  - ANHEDONIA [None]
  - RENAL INJURY [None]
  - INJURY [None]
  - MYOCARDIAL INFARCTION [None]
  - STRESS [None]
  - UNEVALUABLE EVENT [None]
  - PAIN [None]
  - EMOTIONAL DISTRESS [None]
  - FEAR [None]
  - ANXIETY [None]
